FAERS Safety Report 7609000-1 (Version None)
Quarter: 2011Q3

REPORT INFORMATION
  Report Type: 
  Country: None (occurrence: None)
  Receive Date: 20110713
  Receipt Date: 20110713
  Transmission Date: 20111222
  Serious: Yes (Hospitalization)
  Sender: FDA-Public Use
  Company Number: None

PATIENT
  Sex: Female
  Weight: 78.2 kg

DRUGS (8)
  1. IBUPROFEN [Concomitant]
  2. COMPAZINE [Concomitant]
  3. CARBOPLATIN [Suspect]
     Dosage: 555 MG
  4. LISINOPRIL [Concomitant]
  5. ZOFRAN [Concomitant]
  6. PERCOCET [Concomitant]
  7. SENNA PLUS [Concomitant]
  8. TAXOL [Suspect]
     Dosage: 319MG

REACTIONS (5)
  - PALPITATIONS [None]
  - VOMITING [None]
  - HYPOKALAEMIA [None]
  - PLEURAL EFFUSION [None]
  - DYSPNOEA [None]
